FAERS Safety Report 8068990-6 (Version None)
Quarter: 2011Q4

REPORT INFORMATION
  Report Type: 
  Country: None (occurrence: None)
  Receive Date: 20111221
  Receipt Date: 20110812
  Transmission Date: 20120403
  Serious: Yes (Death, Hospitalization)
  Sender: FDA-Public Use
  Company Number: PHHY2010US77919

PATIENT
  Age: 74 Year
  Sex: Male
  Weight: 89.3 kg

DRUGS (4)
  1. ALBUTEROL [Concomitant]
  2. EXJADE [Suspect]
     Indication: IRON OVERLOAD
     Dosage: 500 MG, TID, ORAL
     Route: 048
     Dates: start: 20100530
  3. PROPRANOLOL [Concomitant]
  4. AVELOX [Concomitant]

REACTIONS (5)
  - DYSPNOEA [None]
  - NEOPLASM PROGRESSION [None]
  - NEOPLASM MALIGNANT [None]
  - ACUTE LEUKAEMIA [None]
  - WHITE BLOOD CELL COUNT INCREASED [None]
